FAERS Safety Report 6128239-8 (Version None)
Quarter: 2009Q1

REPORT INFORMATION
  Report Type: 
  Country: None (occurrence: None)
  Receive Date: 20090319
  Receipt Date: 20090304
  Transmission Date: 20090719
  Serious: Yes (Hospitalization)
  Sender: FDA-Public Use
  Company Number: 1-17782386

PATIENT
  Sex: Female

DRUGS (3)
  1. BUPHENYL [Suspect]
     Indication: AMINOACIDURIA
     Dosage: 685 MG/KG, DAILY
  2. L-ARGININE [Concomitant]
  3. AMMONUL [Concomitant]

REACTIONS (15)
  - ALANINE AMINOTRANSFERASE INCREASED [None]
  - ANION GAP INCREASED [None]
  - ASPARTATE AMINOTRANSFERASE INCREASED [None]
  - BLOOD ALBUMIN DECREASED [None]
  - BLOOD AMINO ACID LEVEL DECREASED [None]
  - BLOOD GLUCOSE DECREASED [None]
  - CARBON DIOXIDE DECREASED [None]
  - DEVELOPMENTAL DELAY [None]
  - ELECTROLYTE IMBALANCE [None]
  - HYPOKALAEMIA [None]
  - INCORRECT DOSE ADMINISTERED [None]
  - LACTIC ACIDOSIS [None]
  - LETHARGY [None]
  - URINE ANALYSIS ABNORMAL [None]
  - WEIGHT INCREASED [None]
